FAERS Safety Report 8028838-2 (Version None)
Quarter: 2012Q1

REPORT INFORMATION
  Report Type: 
  Country: None (occurrence: None)
  Receive Date: 20120106
  Receipt Date: 20120103
  Transmission Date: 20120608
  Serious: Yes (Death, Hospitalization)
  Sender: FDA-Public Use
  Company Number: US-GLAXOSMITHKLINE-A0653041A

PATIENT
  Age: 82 Year
  Sex: Male

DRUGS (8)
  1. ZETIA [Concomitant]
  2. CRESTOR [Concomitant]
  3. PLAVIX [Concomitant]
  4. NORVASC [Concomitant]
  5. PRANDIN [Concomitant]
  6. HYDRALAZINE HCL [Concomitant]
  7. AVANDIA [Suspect]
     Indication: TYPE 2 DIABETES MELLITUS
     Route: 048
     Dates: start: 19991101, end: 20090807
  8. EXCEDRIN (MIGRAINE) [Concomitant]

REACTIONS (4)
  - MYOCARDIAL INFARCTION [None]
  - CORONARY ARTERY DISEASE [None]
  - CEREBROVASCULAR ACCIDENT [None]
  - CARDIAC DEATH [None]
